FAERS Safety Report 21226879 (Version 1)
Quarter: 2022Q3

REPORT INFORMATION
  Report Type: Spontaneous
  Country: US (occurrence: None)
  Receive Date: 20220817
  Receipt Date: 20220817
  Transmission Date: 20221026
  Serious: Yes (Other)
  Sender: FDA-Public Use
  Company Number: None

PATIENT
  Sex: Female

DRUGS (1)
  1. XELJANZ [Suspect]
     Active Substance: TOFACITINIB CITRATE
     Indication: Psoriasis
     Dosage: FREQUENCY : TWICE A DAY;?
     Route: 048

REACTIONS (3)
  - Erythema [None]
  - Pruritus [None]
  - Skin burning sensation [None]
